FAERS Safety Report 19873797 (Version 1)
Quarter: 2021Q3

REPORT INFORMATION
  Report Type: Spontaneous
  Country: IR (occurrence: IR)
  Receive Date: 20210922
  Receipt Date: 20210922
  Transmission Date: 20211014
  Serious: Yes (Other)
  Sender: FDA-Public Use
  Company Number: IR-COOPERSURGICAL, INC.-IR-2021CPS002846

PATIENT
  Age: 35 Year
  Sex: Female

DRUGS (1)
  1. PARAGARD T 380A [Suspect]
     Active Substance: COPPER
     Indication: CONTRACEPTION
     Dosage: UNK
     Route: 015

REACTIONS (12)
  - Uterine perforation [Recovered/Resolved]
  - Urinary hesitation [Unknown]
  - Urinary tract infection [Recovered/Resolved]
  - Pelvic adhesions [Recovered/Resolved]
  - Device use issue [Unknown]
  - Device breakage [Recovered/Resolved]
  - Vaginal infection [Recovered/Resolved]
  - Drug ineffective [Unknown]
  - Complication of device removal [Recovered/Resolved]
  - Calculus bladder [Recovered/Resolved]
  - Pregnancy with contraceptive device [Recovered/Resolved]
  - Device dislocation [Recovered/Resolved]
